FAERS Safety Report 8451214-5 (Version None)
Quarter: 2012Q2

REPORT INFORMATION
  Report Type: 
  Country: None (occurrence: None)
  Receive Date: 20120620
  Receipt Date: 20120229
  Transmission Date: 20120825
  Serious: No
  Sender: FDA-Public Use
  Company Number: US-VERTEX PHARMACEUTICALS INC.-AE-2011-005519

PATIENT
  Sex: Male
  Weight: 88.984 kg

DRUGS (4)
  1. INCIVEK [Suspect]
     Indication: HEPATITIS C
     Route: 048
     Dates: start: 20111212
  2. CLONAZEPAM [Concomitant]
  3. RIBAVIRIN [Concomitant]
     Indication: HEPATITIS C
     Dates: start: 20111212
  4. PEGASYS [Concomitant]
     Indication: HEPATITIS C
     Dates: start: 20111212

REACTIONS (1)
  - RASH PRURITIC [None]
